FAERS Safety Report 4322367-5 (Version None)
Quarter: 2004Q1

REPORT INFORMATION
  Report Type: 
  Country: None (occurrence: None)
  Receive Date: 20040319
  Receipt Date: 20040310
  Transmission Date: 20041129
  Serious: Yes (Death)
  Sender: FDA-Public Use
  Company Number: F01200400483

PATIENT
  Age: 61 Year
  Sex: Male

DRUGS (10)
  1. OXALIPLATIN - SOLUTION - 170 MG [Suspect]
     Indication: COLORECTAL CANCER METASTATIC
     Dosage: 170 MG Q3W INTRAVENOUS NOS
     Route: 042
     Dates: start: 20040229, end: 20040229
  2. FLUOROURACIL INJ [Suspect]
     Dosage: 800 MG BOLUS + 1200 MG CONTINUOUS INTRAVENOUS NOS
     Route: 042
     Dates: start: 20040229, end: 20040301
  3. LEUCOVORIN CALCIUM [Suspect]
     Dosage: 400 MG Q2W INTRAVENOUS NOS
     Route: 042
     Dates: start: 20040229, end: 20040301
  4. PANTOLOC  (PANTOPRAZOLE SODIUM) [Concomitant]
  5. MAXERAN (METOCLOPRAMIDE HYDROCHLORIDE) [Suspect]
  6. DECADRON [Concomitant]
  7. ONDANSETRON HCL [Concomitant]
  8. LASIX [Concomitant]
  9. ROBAXIRET (ACETYLSALICYCLIC ACID/METHOCARBAMOL) [Concomitant]
  10. VIOXX [Concomitant]

REACTIONS (3)
  - CARDIAC ARREST [None]
  - CYANOSIS [None]
  - DYSPNOEA [None]
